FAERS Safety Report 10246298 (Version 1)
Quarter: 2014Q2

REPORT INFORMATION
  Report Type: Spontaneous
  Country: US (occurrence: None)
  Receive Date: 20140617
  Receipt Date: 20140617
  Transmission Date: 20141212
  Serious: Yes (Hospitalization)
  Sender: FDA-Public Use
  Company Number: CPI 6048

PATIENT
  Age: 45 Year
  Sex: Male

DRUGS (1)
  1. N-ACETYLCYSTEINE [Suspect]
     Indication: TOXICITY TO VARIOUS AGENTS
     Dosage: UNKNOWN DOSE, FREQ, RTE

REACTIONS (7)
  - Jaundice [None]
  - Hepatotoxicity [None]
  - Ascites [None]
  - Ammonia increased [None]
  - International normalised ratio decreased [None]
  - Toxicity to various agents [None]
  - Portal hypertension [None]
